FAERS Safety Report 20996333 (Version 2)
Quarter: 2023Q1

REPORT INFORMATION
  Report Type: Report from Study
  Country: JP (occurrence: JP)
  Receive Date: 20220623
  Receipt Date: 20230216
  Transmission Date: 20230418
  Serious: Yes (Hospitalization)
  Sender: FDA-Public Use
  Company Number: JP-ONO-2021JP009661

PATIENT
  Age: 70 Year
  Sex: Female
  Weight: 42.5 kg

DRUGS (25)
  1. ETELCALCETIDE [Suspect]
     Active Substance: ETELCALCETIDE
     Indication: Hyperparathyroidism secondary
     Dosage: 5 MG, Q56H
     Route: 010
     Dates: start: 20200615
  2. EPOETIN ALFA [Concomitant]
     Active Substance: ERYTHROPOIETIN
     Dosage: 1500 INTERNATIONAL UNIT, QWK
     Route: 065
     Dates: start: 20210122, end: 20210217
  3. EPOETIN ALFA [Concomitant]
     Active Substance: ERYTHROPOIETIN
     Dosage: 3000 INTERNATIONAL UNIT, QWK
     Route: 065
     Dates: start: 20210219, end: 20210310
  4. EPOETIN ALFA [Concomitant]
     Active Substance: ERYTHROPOIETIN
     Dosage: 6000 INTERNATIONAL UNIT, QWK
     Route: 065
     Dates: start: 20210312, end: 20210523
  5. EPOETIN ALFA BS [Concomitant]
     Active Substance: ERYTHROPOIETIN
     Dosage: 6000 IU, QW
     Route: 065
     Dates: end: 20210120
  6. EPOETIN ALFA BS [Concomitant]
     Active Substance: ERYTHROPOIETIN
     Dosage: 3000 IU, QW
     Route: 065
     Dates: start: 20210524, end: 20210725
  7. EPOETIN ALFA BS [Concomitant]
     Active Substance: ERYTHROPOIETIN
     Dosage: 6000 IU, QW
     Route: 065
     Dates: start: 20210726, end: 20211031
  8. EPOETIN ALFA BS [Concomitant]
     Active Substance: ERYTHROPOIETIN
     Dosage: 1500 IU, QW
     Route: 065
     Dates: start: 20211101, end: 20211125
  9. EPOETIN ALFA BS [Concomitant]
     Active Substance: ERYTHROPOIETIN
     Dosage: 6000 IU, QW
     Route: 065
     Dates: start: 20211126, end: 20220102
  10. EPOETIN ALFA BS [Concomitant]
     Active Substance: ERYTHROPOIETIN
     Dosage: 3000 IU, QW
     Route: 065
     Dates: start: 20220103, end: 20220410
  11. EPOETIN ALFA BS [Concomitant]
     Active Substance: ERYTHROPOIETIN
     Dosage: 6000 IU, QW
     Route: 065
     Dates: start: 20220411
  12. ROCALTROL [Concomitant]
     Active Substance: CALCITRIOL
     Dosage: 1.5 UG, Q56H
     Route: 065
     Dates: end: 20210711
  13. ROCALTROL [Concomitant]
     Active Substance: CALCITRIOL
     Dosage: 1 UG, Q84H
     Route: 065
     Dates: start: 20210712, end: 20211031
  14. ROCALTROL [Concomitant]
     Active Substance: CALCITRIOL
     Dosage: 0.5 UG, QW
     Route: 065
     Dates: start: 20211101, end: 20220105
  15. ROCALTROL [Concomitant]
     Active Substance: CALCITRIOL
     Dosage: 0.5 UG, QW
     Dates: start: 20211101, end: 20220105
  16. ONEALFA [Concomitant]
     Active Substance: ALFACALCIDOL
     Dosage: 0.5 UG, EVERYDAY
     Route: 048
  17. ONEALFA [Concomitant]
     Active Substance: ALFACALCIDOL
     Dosage: 0.5 UG, EVERYDAY
     Route: 048
     Dates: end: 20221028
  18. FOSRENOL [Concomitant]
     Active Substance: LANTHANUM CARBONATE
     Dosage: 250 MG, EVERYDAY
     Route: 048
     Dates: end: 20210218
  19. FOSRENOL [Concomitant]
     Active Substance: LANTHANUM CARBONATE
     Dosage: 2250 MG, EVERYDAY
     Route: 048
     Dates: start: 20210410, end: 20220804
  20. SUCROFERRIC OXYHYDROXIDE [Concomitant]
     Active Substance: SUCROFERRIC OXYHYDROXIDE
     Dosage: 750 MG, EVERYDAY
     Route: 065
     Dates: start: 20210219, end: 20210401
  21. BIXALOMER [Concomitant]
     Active Substance: BIXALOMER
     Dosage: 750 MG, EVERYDAY
     Route: 065
     Dates: start: 20210402, end: 20210409
  22. BIXALOMER [Concomitant]
     Active Substance: BIXALOMER
     Dosage: 750 MG, EVERYDAY
     Route: 065
     Dates: start: 20211213, end: 20220203
  23. BIXALOMER [Concomitant]
     Active Substance: BIXALOMER
     Dosage: 1500 MG, EVERYDAY
     Route: 065
     Dates: start: 20220214
  24. Fesin [Concomitant]
     Dosage: 40 MG, QW
     Route: 065
     Dates: start: 20201116, end: 20220131
  25. LANTHANUM CARBONATE [Concomitant]
     Active Substance: LANTHANUM CARBONATE
     Dosage: 2250 MG, EVERYDAY
     Route: 048
     Dates: start: 20220805

REACTIONS (6)
  - Peripheral arterial occlusive disease [Recovered/Resolved]
  - Shunt stenosis [Recovered/Resolved]
  - Shunt stenosis [Recovered/Resolved]
  - Shunt stenosis [Recovered/Resolved]
  - Shunt stenosis [Recovered/Resolved]
  - Shunt stenosis [Recovered/Resolved]

NARRATIVE: CASE EVENT DATE: 20200708
